FAERS Safety Report 20039720 (Version 1)
Quarter: 2021Q4

REPORT INFORMATION
  Report Type: Spontaneous
  Country: US (occurrence: US)
  Receive Date: 20211106
  Receipt Date: 20211106
  Transmission Date: 20220303
  Serious: No
  Sender: FDA-Public Use
  Company Number: US-SA-SAC20211029001166

PATIENT
  Age: 72 Year
  Sex: Female

DRUGS (2)
  1. DUPIXENT [Suspect]
     Active Substance: DUPILUMAB
     Indication: Dermatitis atopic
     Dosage: UNK, 1X
     Dates: start: 2021, end: 2021
  2. DUPIXENT [Suspect]
     Active Substance: DUPILUMAB
     Dosage: 300 MG, QOW (300 MG EVERY TWO WEEKS)
     Route: 058
     Dates: start: 202108

REACTIONS (9)
  - Depression [Unknown]
  - Pruritus [Unknown]
  - Insomnia [Unknown]
  - Fatigue [Unknown]
  - Hypertension [Unknown]
  - Dry skin [Unknown]
  - Erythema [Unknown]
  - Skin exfoliation [Unknown]
  - Skin fissures [Unknown]

NARRATIVE: CASE EVENT DATE: 20210101
